FAERS Safety Report 26119171 (Version 1)
Quarter: 2025Q4

REPORT INFORMATION
  Report Type: Spontaneous
  Country: US (occurrence: US)
  Receive Date: 20251204
  Receipt Date: 20251204
  Transmission Date: 20260117
  Serious: No
  Sender: UROGEN PHARMA
  Company Number: US-UROGEN PHARMA LTD.-2025-UGN-000183

PATIENT

DRUGS (3)
  1. ZUSDURI [Suspect]
     Active Substance: MITOMYCIN
     Indication: Product used for unknown indication
     Dosage: 56 MILLILITER, ONCE A WEEK (INSTILLATION)
     Route: 043
     Dates: start: 20250917, end: 20250917
  2. ZUSDURI [Suspect]
     Active Substance: MITOMYCIN
     Dosage: 56 MILLILITER, ONCE A WEEK (INSTILLATION)
     Route: 043
     Dates: start: 20250924, end: 20250924
  3. ZUSDURI [Suspect]
     Active Substance: MITOMYCIN
     Dosage: 56 MILLILITER, ONCE A WEEK (INSTILLATION)
     Route: 043
     Dates: start: 20251001, end: 20251001

REACTIONS (1)
  - Urinary tract infection [Not Recovered/Not Resolved]

NARRATIVE: CASE EVENT DATE: 20251008
